FAERS Safety Report 10157094 (Version 1)
Quarter: 2014Q2

REPORT INFORMATION
  Report Type: Spontaneous
  Country: US (occurrence: US)
  Receive Date: 20140507
  Receipt Date: 20140507
  Transmission Date: 20141212
  Serious: Yes (Other)
  Sender: FDA-Public Use
  Company Number: US-BAYER-2014-064467

PATIENT
  Age: 64 Year
  Sex: Female
  Weight: 59 kg

DRUGS (2)
  1. ALKA-SELTZER PLUS SEVERE COUGH AND COLD DAY + NIGHT (DAY) [Suspect]
     Indication: RHINORRHOEA
     Dosage: 2 DF, ONCE
     Route: 048
     Dates: start: 20140427, end: 20140427
  2. ALKA-SELTZER PLUS SEVERE COUGH AND COLD DAY + NIGHT (NIGHT) [Suspect]
     Indication: RHINORRHOEA
     Dosage: 2 DF, ONCE
     Route: 048
     Dates: start: 20140427, end: 20140427

REACTIONS (1)
  - Blood pressure increased [Recovered/Resolved]
